FAERS Safety Report 5771461-0 (Version None)
Quarter: 2008Q2

REPORT INFORMATION
  Report Type: 
  Country: None (occurrence: None)
  Receive Date: 20080611
  Receipt Date: 20080604
  Transmission Date: 20081010
  Serious: Yes (Other)
  Sender: FDA-Public Use
  Company Number: E2020-02676-CLI-JP

PATIENT
  Age: 79 Year
  Sex: Male
  Weight: 40 kg

DRUGS (15)
  1. DONEPEZIL HCL [Suspect]
     Indication: DEMENTIA ALZHEIMER'S TYPE
     Dosage: 3 MG, 1 IN 1 D, ORAL; 5 MG, 1 IN 1 D, ORAL; 10 MG, 1 IN 1 D, ORAL
     Route: 048
     Dates: start: 20050408, end: 20050414
  2. DONEPEZIL HCL [Suspect]
     Indication: DEMENTIA ALZHEIMER'S TYPE
     Dosage: 3 MG, 1 IN 1 D, ORAL; 5 MG, 1 IN 1 D, ORAL; 10 MG, 1 IN 1 D, ORAL
     Route: 048
     Dates: start: 20050415, end: 20080417
  3. DONEPEZIL HCL [Suspect]
     Indication: DEMENTIA ALZHEIMER'S TYPE
     Dosage: 3 MG, 1 IN 1 D, ORAL; 5 MG, 1 IN 1 D, ORAL; 10 MG, 1 IN 1 D, ORAL
     Route: 048
     Dates: start: 20080419, end: 20080422
  4. DONEPEZIL HCL [Suspect]
  5. TIAPRIDE HYDROCHLORIDE (TIAPRIDE HYDROCHLORIDE) [Concomitant]
  6. GASTROM (ECABET MONOSODIUM) [Concomitant]
  7. LANSOPRAZOLE [Concomitant]
  8. C-PARA (C-PARA) [Concomitant]
  9. POTASSIUM L-ASPARTATE (POTASSIUM) [Concomitant]
  10. VEEN-D (GLUCOSE) [Concomitant]
  11. PHYSIO 35 [Concomitant]
  12. SOLITA-T NO 3 [Concomitant]
  13. OMEPRAZOLE [Concomitant]
  14. DALACIN-P (CLINDAMYCIN PHOSPHATE) [Concomitant]
  15. CEFTAZIDIME [Concomitant]

REACTIONS (9)
  - ANOREXIA [None]
  - C-REACTIVE PROTEIN INCREASED [None]
  - HOT FLUSH [None]
  - HYPERNATRAEMIA [None]
  - HYPOKALAEMIA [None]
  - PNEUMONIA ASPIRATION [None]
  - PYREXIA [None]
  - URINARY TRACT INFECTION [None]
  - VOMITING [None]
